FAERS Safety Report 23352204 (Version 1)
Quarter: 2023Q4

REPORT INFORMATION
  Report Type: Spontaneous
  Country: US (occurrence: None)
  Receive Date: 20231229
  Receipt Date: 20231229
  Transmission Date: 20240109
  Serious: Yes (unspecified)
  Sender: FDA-Public Use
  Company Number: None

PATIENT

DRUGS (1)
  1. COSENTYX [Suspect]
     Active Substance: SECUKINUMAB

REACTIONS (6)
  - Rash [None]
  - Pruritus [None]
  - Swollen tongue [None]
  - Hypoaesthesia oral [None]
  - Dyspnoea [None]
  - Drug hypersensitivity [None]

NARRATIVE: CASE EVENT DATE: 20231229
